FAERS Safety Report 15877108 (Version 1)
Quarter: 2019Q1

REPORT INFORMATION
  Report Type: Report from Study
  Country: US (occurrence: US)
  Receive Date: 20190128
  Receipt Date: 20190128
  Transmission Date: 20190417
  Serious: Yes (Hospitalization, Other)
  Sender: FDA-Public Use
  Company Number: US-SAKK-2019SA014733AA

PATIENT
  Age: 38 Year
  Sex: Female

DRUGS (2)
  1. ENOXAPARIN SODIUM. [Suspect]
     Active Substance: ENOXAPARIN SODIUM
     Indication: PULMONARY EMBOLISM
     Dosage: 80 MG, BID
     Route: 058
     Dates: start: 201808, end: 20190112
  2. ENOXAPARIN SODIUM. [Suspect]
     Active Substance: ENOXAPARIN SODIUM
     Dosage: 90 MG, BID
     Route: 058
     Dates: start: 20190114

REACTIONS (4)
  - Pneumonia [Unknown]
  - Dyspnoea [Recovered/Resolved]
  - Chest pain [Recovered/Resolved]
  - Pulmonary embolism [Unknown]

NARRATIVE: CASE EVENT DATE: 20190112
